FAERS Safety Report 4625366-9 (Version None)
Quarter: 2005Q1

REPORT INFORMATION
  Report Type: 
  Country: None (occurrence: None)
  Receive Date: 20050325
  Receipt Date: 20050127
  Transmission Date: 20050727
  Serious: No
  Sender: FDA-Public Use
  Company Number: USA050189331

PATIENT
  Age: 72 Year
  Sex: Female

DRUGS (4)
  1. FORTEO [Suspect]
     Indication: OSTEOPOROSIS
     Dates: start: 20041207
  2. COZAAR [Concomitant]
  3. DYAZIDE [Concomitant]
  4. CALCIUM GLUCONATE [Concomitant]

REACTIONS (5)
  - BLOOD PRESSURE INCREASED [None]
  - BONE PAIN [None]
  - HEART RATE INCREASED [None]
  - INSOMNIA [None]
  - PALPITATIONS [None]
